FAERS Safety Report 9803677 (Version 1)
Quarter: 2014Q1

REPORT INFORMATION
  Report Type: Spontaneous
  Country: US (occurrence: US)
  Receive Date: 20140108
  Receipt Date: 20140108
  Transmission Date: 20141002
  Serious: No
  Sender: FDA-Public Use
  Company Number: US-GLAXOSMITHKLINE-A1022860A

PATIENT
  Age: 75 Year
  Sex: Male
  Weight: 104.1 kg

DRUGS (9)
  1. LOVAZA [Suspect]
     Indication: BLOOD CHOLESTEROL
     Dosage: 2G TWICE PER DAY
     Route: 048
  2. LEVOTHYROXINE [Concomitant]
  3. PROPAFENONE [Concomitant]
  4. ALLOPURINOL [Concomitant]
  5. COREG [Concomitant]
  6. CRESTOR [Concomitant]
  7. ASPIRIN [Concomitant]
  8. METFORMIN [Concomitant]
  9. COQ10 [Concomitant]

REACTIONS (4)
  - Epistaxis [Recovered/Resolved]
  - Dry mouth [Unknown]
  - Dysgeusia [Unknown]
  - Blood pressure increased [Not Recovered/Not Resolved]
